FAERS Safety Report 5280545-5 (Version None)
Quarter: 2007Q1

REPORT INFORMATION
  Report Type: 
  Country: None (occurrence: None)
  Receive Date: 20061229
  Receipt Date: 20060817
  Transmission Date: 20070707
  Serious: Yes (Other)
  Sender: FDA-Public Use
  Company Number: 2006UW16445

PATIENT
  Age: 68 Year
  Sex: Female
  Weight: 50.802 kg

DRUGS (3)
  1. CRESTOR [Suspect]
     Indication: HYPERCHOLESTEROLAEMIA
     Dosage: 10 MG QD PO
     Route: 048
     Dates: start: 20051001
  2. PREVACID [Concomitant]
  3. ARIMIDEX [Concomitant]

REACTIONS (1)
  - WEIGHT DECREASED [None]
